FAERS Safety Report 11765506 (Version 1)
Quarter: 2015Q4

REPORT INFORMATION
  Report Type: Spontaneous
  Country: US (occurrence: US)
  Receive Date: 20151120
  Receipt Date: 20151120
  Transmission Date: 20160304
  Serious: No
  Sender: FDA-Public Use
  Company Number: US-ELI_LILLY_AND_COMPANY-US201405002286

PATIENT
  Sex: Female

DRUGS (7)
  1. FORTEO [Suspect]
     Active Substance: TERIPARATIDE
     Indication: OSTEOPOROSIS
     Dosage: UNK, QD
     Route: 065
     Dates: start: 20130124
  2. B COMPLEX                          /00212701/ [Concomitant]
     Dosage: 100 MG, UNK
  3. OSTEO BI-FLEX [Concomitant]
     Active Substance: CHONDROITIN SULFATE A\GLUCOSAMINE
     Dosage: UNK
  4. FISH OIL [Concomitant]
     Active Substance: FISH OIL
     Dosage: UNK
  5. LECITHIN [Concomitant]
     Active Substance: LECITHIN
     Dosage: UNK
  6. KYOLIC [Concomitant]
     Dosage: UNK
  7. RESVERATROL [Concomitant]
     Active Substance: RESVERATROL
     Dosage: 250 MG, UNK

REACTIONS (3)
  - Emotional disorder [Unknown]
  - Accidental overdose [Unknown]
  - Fatigue [Unknown]
